FAERS Safety Report 24637421 (Version 1)
Quarter: 2024Q4

REPORT INFORMATION
  Report Type: Spontaneous
  Country: US (occurrence: US)
  Receive Date: 20241119
  Receipt Date: 20241119
  Transmission Date: 20250114
  Serious: Yes (Other)
  Sender: LUNDBECK
  Company Number: US-LUNDBECK-DKLU4006920

PATIENT

DRUGS (4)
  1. SABRIL [Suspect]
     Active Substance: VIGABATRIN
     Indication: Infantile spasms
     Dosage: 1000 MILLIGRAM
     Dates: start: 202406
  2. SABRIL [Suspect]
     Active Substance: VIGABATRIN
     Dosage: 750 MILLIGRAM
  3. SABRIL [Suspect]
     Active Substance: VIGABATRIN
     Dosage: MID-DAY DOSE
  4. SABRIL [Suspect]
     Active Substance: VIGABATRIN
     Dosage: 1000 MILLIGRAM

REACTIONS (1)
  - Seizure [Unknown]
